FAERS Safety Report 6295964-8 (Version None)
Quarter: 2009Q3

REPORT INFORMATION
  Report Type: 
  Country: None (occurrence: None)
  Receive Date: 20090803
  Receipt Date: 20090803
  Transmission Date: 20100115
  Serious: Yes (Other)
  Sender: FDA-Public Use
  Company Number: None

PATIENT
  Sex: Female

DRUGS (2)
  1. GLUCOTROL XL [Suspect]
     Indication: DIABETES MELLITUS
     Dosage: 20 MG BID PO
     Route: 048
     Dates: start: 20090614, end: 20090724
  2. METFORMIN HCL [Suspect]
     Indication: DIABETES MELLITUS
     Dosage: 2000 MG BID PO
     Route: 048
     Dates: start: 20090614, end: 20090724

REACTIONS (1)
  - HYPOGLYCAEMIA [None]
